FAERS Safety Report 21098752 (Version 1)
Quarter: 2022Q3

REPORT INFORMATION
  Report Type: Spontaneous
  Country: US (occurrence: None)
  Receive Date: 20220718
  Receipt Date: 20220718
  Transmission Date: 20221027
  Serious: No
  Sender: FDA-Public Use
  Company Number: None

PATIENT
  Sex: Female

DRUGS (1)
  1. ENBREL [Suspect]
     Active Substance: ETANERCEPT
     Indication: Rheumatoid arthritis
     Dosage: 50MG EVERY 7 DAYS SUBCUTANEOUSLY?
     Route: 058
     Dates: start: 202206

REACTIONS (8)
  - Lethargy [None]
  - Paranasal sinus discomfort [None]
  - Nasopharyngitis [None]
  - Influenza [None]
  - Upper respiratory tract infection [None]
  - Photosensitivity reaction [None]
  - Erythema [None]
  - Temperature intolerance [None]
